FAERS Safety Report 6622306-8 (Version None)
Quarter: 2010Q1

REPORT INFORMATION
  Report Type: 
  Country: None (occurrence: None)
  Receive Date: 20100305
  Receipt Date: 20100224
  Transmission Date: 20100710
  Serious: Yes (Death)
  Sender: FDA-Public Use
  Company Number: BET-1790-AE

PATIENT
  Sex: Female

DRUGS (1)
  1. BETIMOL [Suspect]
     Dosage: OPHTHALMIC
     Route: 047

REACTIONS (1)
  - DEATH [None]
